FAERS Safety Report 5357630-2 (Version None)
Quarter: 2007Q2

REPORT INFORMATION
  Report Type: 
  Country: None (occurrence: None)
  Receive Date: 20070614
  Receipt Date: 20070604
  Transmission Date: 20071010
  Serious: Yes (Other)
  Sender: FDA-Public Use
  Company Number: US-PFIZER INC-2007037274

PATIENT
  Sex: Female
  Weight: 68.2 kg

DRUGS (7)
  1. CHANTIX [Suspect]
     Indication: EX-SMOKER
     Route: 048
     Dates: start: 20070401, end: 20070101
  2. FOSAMAX ONCE WEEKLY [Concomitant]
     Route: 048
  3. SPIRIVA [Concomitant]
  4. PROCATEROL HCL [Concomitant]
  5. ADVAIR DISKUS 100/50 [Concomitant]
  6. BENICAR [Concomitant]
     Route: 048
  7. DILTIAZEM [Concomitant]
     Route: 048

REACTIONS (6)
  - ABDOMINAL PAIN UPPER [None]
  - CONSTIPATION [None]
  - DIARRHOEA [None]
  - FEELING ABNORMAL [None]
  - FLATULENCE [None]
  - HAEMATOCHEZIA [None]
